FAERS Safety Report 6501423-7 (Version None)
Quarter: 2009Q4

REPORT INFORMATION
  Report Type: 
  Country: None (occurrence: None)
  Receive Date: 20091215
  Receipt Date: 20091215
  Transmission Date: 20100525
  Serious: Yes (Hospitalization)
  Sender: FDA-Public Use
  Company Number: None

PATIENT
  Age: 30 Year
  Sex: Female
  Weight: 118.8424 kg

DRUGS (2)
  1. LEVAQUIN [Suspect]
     Indication: GALLBLADDER OPERATION
     Dosage: IV
     Route: 042
     Dates: start: 20091029, end: 20091106
  2. LEVAQUIN [Suspect]
     Indication: PANCREATITIS ACUTE
     Dosage: IV
     Route: 042
     Dates: start: 20091029, end: 20091106

REACTIONS (5)
  - DRUG ERUPTION [None]
  - INFUSION SITE HAEMATOMA [None]
  - RASH ERYTHEMATOUS [None]
  - RASH PRURITIC [None]
  - TENDONITIS [None]
